FAERS Safety Report 10340328 (Version 2)
Quarter: 2014Q3

REPORT INFORMATION
  Report Type: Report from Study
  Country: BR (occurrence: BR)
  Receive Date: 20140724
  Receipt Date: 20140809
  Transmission Date: 20150326
  Serious: Yes (Hospitalization)
  Sender: FDA-Public Use
  Company Number: PHHY2014BR090896

PATIENT
  Sex: Male
  Weight: 80 kg

DRUGS (3)
  1. EXELON PATCH [Suspect]
     Active Substance: RIVASTIGMINE
     Indication: MEMORY IMPAIRMENT
     Dosage: 9.5 MG (10 CM2), DAILY
     Route: 062
  2. DRUG THERAPY NOS [Concomitant]
     Active Substance: UNSPECIFIED INGREDIENT
     Dosage: UNK UKN, UNK
  3. EXELON PATCH [Suspect]
     Active Substance: RIVASTIGMINE
     Indication: SENILE DEMENTIA

REACTIONS (9)
  - Incoherent [Recovering/Resolving]
  - Nervous system disorder [Unknown]
  - Dysstasia [Recovering/Resolving]
  - Disease progression [Unknown]
  - Muscular weakness [Recovering/Resolving]
  - Memory impairment [Unknown]
  - Nervousness [Recovering/Resolving]
  - Fall [Recovering/Resolving]
  - Senile dementia [Unknown]
